FAERS Safety Report 5245815-5 (Version None)
Quarter: 2007Q1

REPORT INFORMATION
  Report Type: 
  Country: None (occurrence: None)
  Receive Date: 20070216
  Receipt Date: 20070205
  Transmission Date: 20070707
  Serious: Yes (Other)
  Sender: FDA-Public Use
  Company Number: 1022556-2007-00027

PATIENT
  Age: 40 Year
  Sex: Female

DRUGS (1)
  1. UNISOM [Suspect]

REACTIONS (3)
  - DIZZINESS [None]
  - HYPOAESTHESIA [None]
  - INSOMNIA [None]
